FAERS Safety Report 4532967-5 (Version None)
Quarter: 2004Q4

REPORT INFORMATION
  Report Type: 
  Country: None (occurrence: None)
  Receive Date: 20041210
  Receipt Date: 20040831
  Transmission Date: 20050328
  Serious: No
  Sender: FDA-Public Use
  Company Number: 2004-00451

PATIENT
  Sex: Female

DRUGS (5)
  1. VELCADE [Suspect]
     Indication: MULTIPLE MYELOMA
     Dosage: 2.30 MG, INTRAVENOUS
     Route: 042
     Dates: start: 20040224, end: 20040824
  2. VELCADE [Suspect]
     Indication: MULTIPLE MYELOMA
     Dosage: 2.30 MG, INTRAVENOUS
     Route: 042
     Dates: start: 20031230
  3. NPH INSULIN [Concomitant]
  4. LEVOTHYROXINE [Concomitant]
  5. PROTONIX [Concomitant]

REACTIONS (2)
  - INJECTION SITE REACTION [None]
  - PLATELET COUNT DECREASED [None]
